FAERS Safety Report 5303555-8 (Version None)
Quarter: 2007Q2

REPORT INFORMATION
  Report Type: 
  Country: None (occurrence: None)
  Receive Date: 20070420
  Receipt Date: 20070411
  Transmission Date: 20071010
  Serious: Yes (Hospitalization, Other)
  Sender: FDA-Public Use
  Company Number: IE-PFIZER INC-2007029574

PATIENT
  Age: 60 Year
  Sex: Female

DRUGS (4)
  1. CARDURA [Suspect]
     Indication: HYPERTENSION
  2. CARDURA [Suspect]
  3. ALL OTHER THERAPEUTIC PRODUCTS [Concomitant]
  4. ANTIHYPERTENSIVES [Concomitant]

REACTIONS (2)
  - ABDOMINAL PAIN [None]
  - HYPERTENSION [None]
